FAERS Safety Report 8133609-2 (Version None)
Quarter: 2012Q1

REPORT INFORMATION
  Report Type: 
  Country: None (occurrence: None)
  Receive Date: 20120213
  Receipt Date: 20120131
  Transmission Date: 20120608
  Serious: Yes (Disabling, Other)
  Sender: FDA-Public Use
  Company Number: US-ROCHE-799049

PATIENT
  Sex: Male
  Weight: 69.9 kg

DRUGS (5)
  1. AVASTIN [Suspect]
     Indication: CYSTOID MACULAR OEDEMA
     Dosage: DOSE: REPORTED AS 3.75 MG (0.15 ML)
     Route: 050
  2. OFLOXACIN [Concomitant]
     Dosage: 3 % OPHTH
     Route: 047
  3. POVIDONE IODINE [Concomitant]
     Dosage: 5 % IN BSS
  4. PROPARACAINE HCL [Concomitant]
     Route: 047
  5. AVASTIN [Suspect]
     Dosage: FREQUENCY: 1 OF 3 INJ
     Route: 050
     Dates: start: 20110812, end: 20110815

REACTIONS (7)
  - VISUAL ACUITY REDUCED [None]
  - EYE INFLAMMATION [None]
  - VISION BLURRED [None]
  - PAIN [None]
  - PRODUCT QUALITY ISSUE [None]
  - BLINDNESS [None]
  - EYE PAIN [None]
